FAERS Safety Report 11464523 (Version 1)
Quarter: 2015Q3

REPORT INFORMATION
  Report Type: Spontaneous
  Country: US (occurrence: US)
  Receive Date: 20150831
  Receipt Date: 20150831
  Transmission Date: 20151125
  Serious: Yes (Death)
  Sender: FDA-Public Use
  Company Number: US-ELI_LILLY_AND_COMPANY-US201105001324

PATIENT
  Age: 67 Year
  Sex: Female
  Weight: 99.77 kg

DRUGS (7)
  1. INVEGA [Concomitant]
     Active Substance: PALIPERIDONE
     Indication: BIPOLAR DISORDER
     Dosage: 9 MG, QD
  2. INSULIN [Concomitant]
     Active Substance: INSULIN NOS
  3. CYMBALTA [Suspect]
     Active Substance: DULOXETINE HYDROCHLORIDE
     Indication: BIPOLAR DISORDER
     Dosage: 60 MG, BID
     Route: 048
     Dates: start: 2004
  4. LOVAZA [Concomitant]
     Active Substance: OMEGA-3-ACID ETHYL ESTERS
     Dosage: 1 G, QD
  5. GLUCOPHAGE [Concomitant]
     Active Substance: METFORMIN HYDROCHLORIDE
  6. LAMICTAL [Concomitant]
     Active Substance: LAMOTRIGINE
     Indication: BIPOLAR DISORDER
     Dosage: 150 MG, BID
  7. ACTOS [Concomitant]
     Active Substance: PIOGLITAZONE HYDROCHLORIDE

REACTIONS (2)
  - Off label use [Recovered/Resolved]
  - Myocardial infarction [Fatal]

NARRATIVE: CASE EVENT DATE: 2004
